FAERS Safety Report 23058603 (Version 1)
Quarter: 2023Q4

REPORT INFORMATION
  Report Type: Other
  Country: CA (occurrence: None)
  Receive Date: 20231012
  Receipt Date: 20231012
  Transmission Date: 20240110
  Serious: Yes (Other)
  Sender: FDA-Public Use
  Company Number: CA-ROCHE-3288291

PATIENT
  Age: 60 Year
  Sex: Male

DRUGS (8)
  1. ACTEMRA [Suspect]
     Active Substance: TOCILIZUMAB
     Indication: Rheumatoid arthritis
     Route: 058
     Dates: start: 20210311, end: 202112
  2. RITUXAN [Suspect]
     Active Substance: RITUXIMAB
     Indication: Product used for unknown indication
     Dosage: LAST INFUSION WAS RECEIVED ON 30/JAN/2018
     Route: 041
     Dates: start: 20180116, end: 20180130
  3. ACTEMRA [Suspect]
     Active Substance: TOCILIZUMAB
     Indication: Rheumatoid arthritis
     Dosage: ONLY RECEIVED 1 INFUSION
     Route: 042
     Dates: start: 20210118, end: 20210118
  4. OXYCODONE [Concomitant]
     Active Substance: OXYCODONE
     Dosage: OXYNEO 10
  5. OXYCODONE [Concomitant]
     Active Substance: OXYCODONE
     Dosage: OXYNEO 40
  6. ROSUVASTATIN [Concomitant]
     Active Substance: ROSUVASTATIN
  7. SULFASALAZINE [Concomitant]
     Active Substance: SULFASALAZINE
  8. VALSARTAN [Concomitant]
     Active Substance: VALSARTAN

REACTIONS (2)
  - Arthropathy [Unknown]
  - Arthropathy [Unknown]

NARRATIVE: CASE EVENT DATE: 20221201
